FAERS Safety Report 24529762 (Version 1)
Quarter: 2024Q4

REPORT INFORMATION
  Report Type: Spontaneous
  Country: IT (occurrence: IT)
  Receive Date: 20241021
  Receipt Date: 20241021
  Transmission Date: 20250115
  Serious: Yes (Other)
  Sender: AMGEN
  Company Number: IT-AMGEN-ITASP2024204198

PATIENT
  Sex: Female

DRUGS (1)
  1. PROLIA [Suspect]
     Active Substance: DENOSUMAB
     Indication: Osteoporosis
     Dosage: UNK
     Route: 065
     Dates: start: 2022

REACTIONS (5)
  - Pelvic fracture [Unknown]
  - Radius fracture [Unknown]
  - Ulna fracture [Unknown]
  - Fall [Unknown]
  - Alopecia [Unknown]

NARRATIVE: CASE EVENT DATE: 20240301
